FAERS Safety Report 15848484 (Version 1)
Quarter: 2019Q1

REPORT INFORMATION
  Report Type: Report from Study
  Country: CN (occurrence: CN)
  Receive Date: 20190121
  Receipt Date: 20190121
  Transmission Date: 20190417
  Serious: Yes (Other)
  Sender: FDA-Public Use
  Company Number: CN-UCBSA-2019002391

PATIENT

DRUGS (2)
  1. LEVETIRACETAM. [Suspect]
     Active Substance: LEVETIRACETAM
     Indication: EPILEPSY
     Dosage: 20 MG/KG, 2X/DAY (BID), INITIAL DOSE, INCREASED BY 10 MG/KG PER DAY EVERY TWO WEEKS
     Route: 048
  2. LEVETIRACETAM. [Suspect]
     Active Substance: LEVETIRACETAM
     Dosage: MAINTENANCE DOSE WAS 30 TO 40 MG/KG PER DAY AND WAS REACHED IN 12 WEEKS
     Route: 048

REACTIONS (1)
  - Seizure [Unknown]
